FAERS Safety Report 7813130-9 (Version None)
Quarter: 2011Q4

REPORT INFORMATION
  Report Type: 
  Country: None (occurrence: None)
  Receive Date: 20111013
  Receipt Date: 20110930
  Transmission Date: 20120403
  Serious: Yes (Other)
  Sender: FDA-Public Use
  Company Number: MA-WATSON-2011-14753

PATIENT

DRUGS (1)
  1. PREDNISONE [Suspect]
     Indication: DERMATOSIS
     Dosage: UNK

REACTIONS (6)
  - DEPRESSION [None]
  - HYPOMANIA [None]
  - ANXIETY [None]
  - SUICIDE ATTEMPT [None]
  - HALLUCINATION [None]
  - INSOMNIA [None]
